FAERS Safety Report 5406965-3 (Version None)
Quarter: 2007Q3

REPORT INFORMATION
  Report Type: 
  Country: None (occurrence: None)
  Receive Date: 20070803
  Receipt Date: 20070803
  Transmission Date: 20080115
  Serious: Yes (Disabling)
  Sender: FDA-Public Use
  Company Number: None

PATIENT
  Sex: Female
  Weight: 87.5442 kg

DRUGS (1)
  1. CYMBALTA [Suspect]
     Indication: DEPRESSION
     Dosage: 60 MG 1 TIME PER DAY PO
     Route: 048
     Dates: start: 20070718, end: 20070730

REACTIONS (3)
  - ABDOMINAL TENDERNESS [None]
  - HEPATIC ENZYME ABNORMAL [None]
  - INSOMNIA [None]
